FAERS Safety Report 7283216-9 (Version None)
Quarter: 2011Q1

REPORT INFORMATION
  Report Type: 
  Country: None (occurrence: None)
  Receive Date: 20110209
  Receipt Date: 20110127
  Transmission Date: 20110831
  Serious: Yes (Other)
  Sender: FDA-Public Use
  Company Number: PHHY2010NL86616

PATIENT
  Sex: Female

DRUGS (3)
  1. SANDOSTATIN LAR [Suspect]
     Indication: NEUROENDOCRINE TUMOUR
     Dosage: 20 MG, UNK
     Dates: start: 20100202
  2. SANDOSTATIN LAR [Suspect]
     Dosage: UNK
     Dates: start: 20101201
  3. SANDOSTATIN LAR [Suspect]
     Dosage: UNK
     Dates: start: 20110101

REACTIONS (7)
  - MALAISE [None]
  - LOCAL SWELLING [None]
  - HEPATIC PAIN [None]
  - BILIARY COLIC [None]
  - PAIN [None]
  - DIARRHOEA [None]
  - DRUG INEFFECTIVE [None]
